FAERS Safety Report 11143954 (Version 1)
Quarter: 2015Q2

REPORT INFORMATION
  Report Type: Spontaneous
  Country: CA (occurrence: CA)
  Receive Date: 20150528
  Receipt Date: 20150528
  Transmission Date: 20150821
  Serious: Yes (Hospitalization)
  Sender: FDA-Public Use
  Company Number: CA-TEVA-565518ACC

PATIENT
  Age: 92 Year
  Sex: Male
  Weight: 61 kg

DRUGS (2)
  1. AVODART [Concomitant]
     Active Substance: DUTASTERIDE
     Dosage: UNKNOWN FORM STRENGTH
  2. TEVA-PIOGLITAZONE [Suspect]
     Active Substance: PIOGLITAZONE
     Indication: DIABETES MELLITUS
     Dosage: 30 MILLIGRAM DAILY;
     Route: 048

REACTIONS (2)
  - Fall [Unknown]
  - Hepatic enzyme increased [Unknown]
